FAERS Safety Report 24396945 (Version 1)
Quarter: 2024Q4

REPORT INFORMATION
  Report Type: Report from Study
  Country: US (occurrence: US)
  Receive Date: 20241004
  Receipt Date: 20241004
  Transmission Date: 20250115
  Serious: Yes (Other)
  Sender: BAYER
  Company Number: US-BAYER-2024A136355

PATIENT

DRUGS (2)
  1. AFRIN ORIGINAL NASAL [Suspect]
     Active Substance: OXYMETAZOLINE HYDROCHLORIDE
     Indication: Nasal congestion
     Dosage: UNK
  2. EUCALYPTOL\MENTHOL\ROSEMARY OIL [Suspect]
     Active Substance: EUCALYPTOL\MENTHOL\ROSEMARY OIL
     Indication: Nasal congestion
     Dosage: UNK

REACTIONS (2)
  - Drug dependence [Unknown]
  - Therapeutic response unexpected [Unknown]
